FAERS Safety Report 5003850-6 (Version None)
Quarter: 2006Q2

REPORT INFORMATION
  Report Type: 
  Country: None (occurrence: None)
  Receive Date: 20060515
  Receipt Date: 20060508
  Transmission Date: 20061013
  Serious: Yes (Hospitalization)
  Sender: FDA-Public Use
  Company Number: 2006061282

PATIENT
  Age: 35 Year
  Sex: Male

DRUGS (2)
  1. SULFASALAZINE [Suspect]
     Indication: ARTHRITIS REACTIVE
     Dosage: 2 GRAM (1 GRAM, 2 IN 1 D), ORAL
     Route: 048
     Dates: start: 20060227, end: 20060331
  2. DICLOFENAC SODIUM [Concomitant]

REACTIONS (7)
  - EOSINOPHILIA [None]
  - HYPERSENSITIVITY [None]
  - LIVER FUNCTION TEST ABNORMAL [None]
  - LYMPHADENOPATHY [None]
  - PYREXIA [None]
  - RASH [None]
  - RENAL IMPAIRMENT [None]
